FAERS Safety Report 15826645 (Version 1)
Quarter: 2019Q1

REPORT INFORMATION
  Report Type: Spontaneous
  Country: US (occurrence: US)
  Receive Date: 20190115
  Receipt Date: 20190115
  Transmission Date: 20190417
  Serious: Yes (Hospitalization, Other)
  Sender: FDA-Public Use
  Company Number: US-IBIGEN-2019.05620

PATIENT
  Age: 71 Year
  Sex: Female

DRUGS (7)
  1. ESOMEPRAZOLE. [Suspect]
     Active Substance: ESOMEPRAZOLE MAGNESIUM
  2. CLONAZEPAM. [Suspect]
     Active Substance: CLONAZEPAM
  3. VANCOMYCIN [Suspect]
     Active Substance: VANCOMYCIN
     Indication: DIARRHOEA
     Route: 042
  4. FLUCONAZOLE. [Suspect]
     Active Substance: FLUCONAZOLE
     Indication: DIARRHOEA
  5. CHOLECALCIFEROL [Suspect]
     Active Substance: CHOLECALCIFEROL
  6. PIPERACILLIN AND TAZOBACTAM [Suspect]
     Active Substance: PIPERACILLIN SODIUM\TAZOBACTAM SODIUM
     Indication: DIARRHOEA
     Route: 042
  7. ONDANSETRON [Suspect]
     Active Substance: ONDANSETRON
     Dosage: 8 MG EVERY 8 HOURS

REACTIONS (9)
  - Electrocardiogram QT prolonged [Not Recovered/Not Resolved]
  - Sinus bradycardia [Unknown]
  - Blood magnesium increased [Unknown]
  - Electrocardiogram abnormal [Unknown]
  - Ventricular extrasystoles [Unknown]
  - Electrocardiogram QRS complex abnormal [Unknown]
  - Syncope [Unknown]
  - Torsade de pointes [Unknown]
  - Hypokalaemia [Recovered/Resolved]
